FAERS Safety Report 17433126 (Version 2)
Quarter: 2020Q1

REPORT INFORMATION
  Report Type: Report from Study
  Country: None (occurrence: CA)
  Receive Date: 20200219
  Receipt Date: 20200220
  Transmission Date: 20200409
  Serious: Yes (Hospitalization, Other)
  Sender: FDA-Public Use
  Company Number: CA-ABBVIE-20K-028-3236260-00

PATIENT
  Age: 38 Year
  Sex: Male

DRUGS (3)
  1. HUMIRA [Suspect]
     Active Substance: ADALIMUMAB
     Indication: CROHN^S DISEASE
     Route: 058
     Dates: end: 2019
  2. HUMIRA [Suspect]
     Active Substance: ADALIMUMAB
     Route: 058
     Dates: start: 20190426
  3. REMICADE [Suspect]
     Active Substance: INFLIXIMAB
     Indication: PRODUCT USED FOR UNKNOWN INDICATION
     Route: 065

REACTIONS (10)
  - Abdominal pain [Unknown]
  - Intestinal obstruction [Recovered/Resolved]
  - Eczema [Not Recovered/Not Resolved]
  - Hypoaesthesia [Unknown]
  - Vomiting [Recovered/Resolved]
  - Paraesthesia [Recovered/Resolved]
  - Intestinal obstruction [Recovered/Resolved]
  - Injection site alopecia [Not Recovered/Not Resolved]
  - Blood bilirubin increased [Unknown]
  - Nausea [Recovered/Resolved]

NARRATIVE: CASE EVENT DATE: 2019
